FAERS Safety Report 6941020-2 (Version None)
Quarter: 2010Q3

REPORT INFORMATION
  Report Type: 
  Country: None (occurrence: None)
  Receive Date: 20100825
  Receipt Date: 20100817
  Transmission Date: 20110219
  Serious: Yes (Death)
  Sender: FDA-Public Use
  Company Number: B0670167A

PATIENT
  Age: 66 Year
  Sex: Female

DRUGS (8)
  1. CEFTAZIDIME [Suspect]
     Indication: BRONCHIECTASIS
     Route: 042
  2. ALVERINE [Concomitant]
     Dosage: 360MG PER DAY
     Route: 048
  3. PROCHLORPERAZINE [Concomitant]
     Dosage: 15MG PER DAY
  4. OMEPRAZOLE [Concomitant]
     Dosage: 40MG PER DAY
     Route: 048
  5. FUROSEMIDE [Concomitant]
     Dosage: 40MG PER DAY
     Route: 048
  6. LISINOPRIL [Concomitant]
     Indication: HYPERTENSION
     Route: 048
  7. ALBUTEROL SULFATE AUTOHALER [Concomitant]
     Route: 055
  8. IPRATROPIUM BROMIDE [Concomitant]
     Route: 055

REACTIONS (1)
  - ANAPHYLACTIC REACTION [None]
